FAERS Safety Report 5950933-X (Version None)
Quarter: 2008Q4

REPORT INFORMATION
  Report Type: 
  Country: None (occurrence: None)
  Receive Date: 20081112
  Receipt Date: 20081103
  Transmission Date: 20090506
  Serious: Yes (Hospitalization)
  Sender: FDA-Public Use
  Company Number: NL-ABBOTT-08P-114-0484133-00

PATIENT
  Weight: 96 kg

DRUGS (11)
  1. HUMIRA [Suspect]
     Indication: CROHN'S DISEASE
     Route: 058
     Dates: start: 20070101, end: 20080820
  2. HUMIRA [Suspect]
     Indication: RHEUMATOID ARTHRITIS
     Route: 058
     Dates: start: 20070101, end: 20080820
  3. CELECOXIB [Concomitant]
     Indication: DRUG USE FOR UNKNOWN INDICATION
     Route: 048
  4. PANTOPRAZOLE SODIUM [Concomitant]
     Indication: DRUG USE FOR UNKNOWN INDICATION
     Route: 048
     Dates: start: 20060101
  5. BUDESONIDE W/FORMOTEROL FUMARATE [Concomitant]
     Indication: DRUG USE FOR UNKNOWN INDICATION
     Route: 055
     Dates: start: 19900101
  6. TRAMADOL HYDROCHLRICUM RETARD CAPSULE MGA [Concomitant]
     Indication: DRUG USE FOR UNKNOWN INDICATION
  7. HYDROXOCOBALAMIN HYDROCHLORIDE [Concomitant]
     Indication: DRUG USE FOR UNKNOWN INDICATION
     Route: 050
     Dates: start: 19970601
  8. DURATEARS EYEDROPS FALCON [Concomitant]
     Indication: DRUG USE FOR UNKNOWN INDICATION
     Dates: start: 19890101
  9. DURATEARS Z EYE OINTMENT TUBE [Concomitant]
     Indication: DRUG USE FOR UNKNOWN INDICATION
     Dosage: 1 TIME DAILY BEFORE THE NIGHT
     Route: 048
     Dates: start: 19890101
  10. CALCI CHEW CHEWTABLET [Concomitant]
     Indication: DRUG USE FOR UNKNOWN INDICATION
     Route: 048
     Dates: start: 19850101
  11. PARACETAMOL ACTAVIS [Concomitant]
     Indication: DRUG USE FOR UNKNOWN INDICATION
     Route: 048
     Dates: start: 20080615

REACTIONS (9)
  - ABDOMINAL ABSCESS [None]
  - ABDOMINAL WALL INFECTION [None]
  - C-REACTIVE PROTEIN INCREASED [None]
  - CYSTITIS NONINFECTIVE [None]
  - GENERAL PHYSICAL HEALTH DETERIORATION [None]
  - INCISIONAL HERNIA [None]
  - INFLAMMATION OF WOUND [None]
  - POSTOPERATIVE WOUND INFECTION [None]
  - STAPHYLOCOCCAL INFECTION [None]
